FAERS Safety Report 14331165 (Version 1)
Quarter: 2017Q4

REPORT INFORMATION
  Report Type: Report from Study
  Country: None (occurrence: US)
  Receive Date: 20171228
  Receipt Date: 20171228
  Transmission Date: 20180321
  Serious: Yes (Other)
  Sender: FDA-Public Use
  Company Number: US-ABBVIE-17K-163-2177889-00

PATIENT
  Age: 63 Year
  Sex: Male

DRUGS (1)
  1. HUMIRA [Suspect]
     Active Substance: ADALIMUMAB
     Indication: PSORIASIS
     Route: 058

REACTIONS (6)
  - Feeling abnormal [Unknown]
  - Carotid artery occlusion [Unknown]
  - Headache [Unknown]
  - Pain [Unknown]
  - Carotid arteriosclerosis [Unknown]
  - Flushing [Unknown]

NARRATIVE: CASE EVENT DATE: 201711
